FAERS Safety Report 5114003-5 (Version None)
Quarter: 2006Q3

REPORT INFORMATION
  Report Type: 
  Country: None (occurrence: None)
  Receive Date: 20060921
  Receipt Date: 20060912
  Transmission Date: 20061208
  Serious: Yes (Hospitalization)
  Sender: FDA-Public Use
  Company Number: TPA2006A00688

PATIENT
  Sex: Female

DRUGS (4)
  1. ROZEREM [Suspect]
     Dosage: 8 MG, PER ORAL
     Route: 048
  2. PROTON PUMP INHIBITOR (PROTON PUMP INHIBITORS) [Concomitant]
  3. METHYLTREXATE (METHOTREXATE) [Concomitant]
  4. SYNTHROID [Concomitant]

REACTIONS (4)
  - CONTUSION [None]
  - POLYTRAUMATISM [None]
  - ROAD TRAFFIC ACCIDENT [None]
  - SOMNOLENCE [None]
